FAERS Safety Report 9412111 (Version 1)
Quarter: 2013Q2

REPORT INFORMATION
  Report Type: Spontaneous
  Country: US (occurrence: US)
  Receive Date: 20130422
  Receipt Date: 20130422
  Transmission Date: 20140414
  Serious: Yes (Other)
  Sender: FDA-Public Use
  Company Number: A1019954A

PATIENT
  Sex: Female

DRUGS (1)
  1. CALCIUM CARBONATE [Suspect]
     Indication: PRODUCT USED FOR UNKNOWN INDICATION
     Dosage: CONSUMER WAS TAKING APPR. 20 CHEWABLE TABLETS PER DAY.

REACTIONS (3)
  - Haemorrhage [None]
  - Drug administration error [None]
  - Drug abuse [None]
